FAERS Safety Report 5483914-3 (Version None)
Quarter: 2007Q4

REPORT INFORMATION
  Report Type: 
  Country: None (occurrence: None)
  Receive Date: 20071012
  Receipt Date: 20071008
  Transmission Date: 20080405
  Serious: Yes (Life-Threatening)
  Sender: FDA-Public Use
  Company Number: IT-BRISTOL-MYERS SQUIBB COMPANY-13933551

PATIENT
  Age: 71 Year
  Sex: Female

DRUGS (1)
  1. COAPROVEL TABS [Suspect]
     Route: 048
     Dates: end: 20071005

REACTIONS (3)
  - ASTHENIA [None]
  - MALAISE [None]
  - SYNCOPE [None]
